FAERS Safety Report 8357462-7 (Version None)
Quarter: 2012Q2

REPORT INFORMATION
  Report Type: 
  Country: None (occurrence: None)
  Receive Date: 20120510
  Receipt Date: 20120425
  Transmission Date: 20120825
  Serious: Yes (Other)
  Sender: FDA-Public Use
  Company Number: 2012SP022584

PATIENT
  Age: 40 Year
  Sex: Male

DRUGS (3)
  1. RIBAVIRIN [Suspect]
     Indication: HEPATITIS C
  2. PEGINTERFERON ALFA-2B [Suspect]
     Indication: HEPATITIS C
  3. BOCEPREVIR (SCH-503034) [Suspect]
     Indication: HEPATITIS C
     Dosage: 800 MG;TID
     Dates: start: 20120416

REACTIONS (6)
  - ASTHENIA [None]
  - PLATELET COUNT DECREASED [None]
  - DECREASED APPETITE [None]
  - VOMITING [None]
  - PHOSPHENES [None]
  - CHILLS [None]
